FAERS Safety Report 17988316 (Version 1)
Quarter: 2020Q3

REPORT INFORMATION
  Report Type: Spontaneous
  Country: US (occurrence: US)
  Receive Date: 20200706
  Receipt Date: 20200706
  Transmission Date: 20201103
  Serious: Yes (Life-Threatening, Disabling, Other)
  Sender: FDA-Public Use
  Company Number: None

PATIENT
  Age: 66 Year
  Sex: Female
  Weight: 47.7 kg

DRUGS (5)
  1. HYOSCYAMINE 0.0125MG [Concomitant]
  2. DICLOFENANCE 75MG [Concomitant]
  3. SOLU?MEDROL [Concomitant]
     Active Substance: METHYLPREDNISOLONE SODIUM SUCCINATE
  4. LEVOYTHYROXINE 0.075MG [Concomitant]
  5. HYDROCORTISONE TABLETS 10MG [Suspect]
     Active Substance: HYDROCORTISONE
     Indication: ADDISON^S DISEASE
     Dosage: ?          QUANTITY:1 TABLET(S);OTHER FREQUENCY:30 MG AM 10 MG PM;?
     Route: 048
     Dates: start: 20200501, end: 20200622

REACTIONS (14)
  - Adrenocortical insufficiency acute [None]
  - Product substitution issue [None]
  - Myalgia [None]
  - Asthenia [None]
  - Fatigue [None]
  - Product quality issue [None]
  - Nervousness [None]
  - Diarrhoea [None]
  - Flatulence [None]
  - Gait inability [None]
  - Nausea [None]
  - Stress [None]
  - Dyspepsia [None]
  - Depression [None]

NARRATIVE: CASE EVENT DATE: 20200621
